FAERS Safety Report 8370127-0 (Version None)
Quarter: 2012Q2

REPORT INFORMATION
  Report Type: 
  Country: None (occurrence: None)
  Receive Date: 20120518
  Receipt Date: 20120514
  Transmission Date: 20120825
  Serious: Yes (Hospitalization, Other)
  Sender: FDA-Public Use
  Company Number: US-BAYER-2012-005462

PATIENT
  Age: 22 Year
  Sex: Female
  Weight: 58.05 kg

DRUGS (8)
  1. YAZ [Suspect]
     Indication: PREMENSTRUAL SYNDROME
  2. NAPROXEN (ALEVE) [Concomitant]
     Dosage: AS NEEDED
     Route: 048
  3. XIFAXIN [Concomitant]
     Dosage: ONE TABLET TWICE DAILY FOR 2 WEEKS
     Route: 048
     Dates: start: 20101019
  4. LIBRAX [Concomitant]
     Indication: ABDOMINAL PAIN
     Dosage: TAKE ONE CAPSULE THREE TIMES DAILY BEFORE MEALS AS NEEDED
     Route: 048
     Dates: start: 20100809, end: 20110308
  5. YAZ [Suspect]
     Indication: ENDOMETRIOSIS
     Dosage: UNK
     Dates: start: 20070701, end: 20101001
  6. IMODIUM [Concomitant]
     Dosage: AS NEEDED
     Route: 048
  7. GAS-X [Concomitant]
     Dosage: AS NEEDED
     Route: 048
  8. YAZ [Suspect]
     Indication: DYSMENORRHOEA

REACTIONS (6)
  - VOMITING [None]
  - PAIN [None]
  - NAUSEA [None]
  - EMOTIONAL DISTRESS [None]
  - CHOLELITHIASIS [None]
  - CHOLECYSTITIS ACUTE [None]
